FAERS Safety Report 6229251-0 (Version None)
Quarter: 2009Q2

REPORT INFORMATION
  Report Type: 
  Country: None (occurrence: None)
  Receive Date: 20090615
  Receipt Date: 20090515
  Transmission Date: 20091009
  Serious: No
  Sender: FDA-Public Use
  Company Number: US-BAYER-200917010NA

PATIENT
  Age: 74 Year
  Sex: Male
  Weight: 87 kg

DRUGS (3)
  1. AVELOX [Suspect]
     Indication: PNEUMONIA PRIMARY ATYPICAL
     Dosage: AS USED: 400 MG  UNIT DOSE: 400 MG
     Dates: start: 20090327
  2. VERAPAMIL [Concomitant]
  3. MONOPRIL [Concomitant]

REACTIONS (4)
  - ABDOMINAL PAIN UPPER [None]
  - MOBILITY DECREASED [None]
  - NAUSEA [None]
  - VOMITING [None]
